FAERS Safety Report 18305813 (Version 1)
Quarter: 2020Q3

REPORT INFORMATION
  Report Type: Spontaneous
  Country: US (occurrence: US)
  Receive Date: 20200923
  Receipt Date: 20200923
  Transmission Date: 20201103
  Serious: Yes (Other)
  Sender: FDA-Public Use
  Company Number: US-ALLERGAN-1931000US

PATIENT
  Sex: Female

DRUGS (1)
  1. REFRESH OPTIVE [Suspect]
     Active Substance: CARBOXYMETHYLCELLULOSE SODIUM\GLYCERIN
     Indication: DRY EYE
     Dosage: 5 TIMES DAILY UNTIL THE EVENT HAPPEND AND 2?3 TIMES DAILY AFTER RESTARTING USING THE PRODUCT
     Dates: start: 2016

REACTIONS (2)
  - Cataract [Unknown]
  - Eye irritation [Recovered/Resolved]
